FAERS Safety Report 8248611-X (Version None)
Quarter: 2012Q1

REPORT INFORMATION
  Report Type: 
  Country: None (occurrence: None)
  Receive Date: 20120330
  Receipt Date: 20120322
  Transmission Date: 20120608
  Serious: Yes (Other)
  Sender: FDA-Public Use
  Company Number: US-ASTRAZENECA-2010SE46562

PATIENT
  Age: 46 Year
  Sex: Female

DRUGS (3)
  1. ZOMIG [Suspect]
     Indication: MIGRAINE
     Route: 048
  2. ZOMIG [Suspect]
     Route: 048
  3. ALLEGRA [Concomitant]

REACTIONS (9)
  - MIGRAINE [None]
  - DEPRESSION [None]
  - HYPERSENSITIVITY [None]
  - SUICIDAL IDEATION [None]
  - PRURITUS [None]
  - FATIGUE [None]
  - INTENTIONAL DRUG MISUSE [None]
  - CARDIOVASCULAR DISORDER [None]
  - MALAISE [None]
